FAERS Safety Report 13259280 (Version 1)
Quarter: 2017Q1

REPORT INFORMATION
  Report Type: Spontaneous
  Country: US (occurrence: US)
  Receive Date: 20170222
  Receipt Date: 20170222
  Transmission Date: 20170428
  Serious: No
  Sender: FDA-Public Use
  Company Number: US-PFIZER INC-2017070518

PATIENT
  Sex: Female

DRUGS (1)
  1. XELJANZ XR [Suspect]
     Active Substance: TOFACITINIB CITRATE
     Dosage: 11 MG, UNK
     Dates: start: 20160801

REACTIONS (16)
  - Arthralgia [Unknown]
  - Back pain [Unknown]
  - Myositis [Unknown]
  - Musculoskeletal pain [Unknown]
  - Sciatica [Unknown]
  - Fatigue [Unknown]
  - Neck pain [Unknown]
  - Poor dental condition [Unknown]
  - Myalgia [Unknown]
  - Sleep disorder [Unknown]
  - Spinal deformity [Unknown]
  - Arthropathy [Unknown]
  - Pain in extremity [Unknown]
  - Muscular weakness [Unknown]
  - Malaise [Unknown]
  - Musculoskeletal stiffness [Unknown]
